FAERS Safety Report 5909230-0 (Version None)
Quarter: 2008Q4

REPORT INFORMATION
  Report Type: 
  Country: None (occurrence: None)
  Receive Date: 20081006
  Receipt Date: 20080930
  Transmission Date: 20090506
  Serious: Yes (Hospitalization)
  Sender: FDA-Public Use
  Company Number: PHHY2008JP21957

PATIENT
  Sex: Male

DRUGS (5)
  1. SANDOSTATIN LAR [Suspect]
     Indication: ACROMEGALY
     Dosage: 20 MG, QMO
     Route: 030
     Dates: start: 20080617, end: 20080812
  2. THYRADIN [Concomitant]
     Dosage: 75 UG, UNK
     Route: 048
  3. CORTRIL [Concomitant]
     Dosage: 10 MG, UNK
     Route: 048
  4. PARLODEL [Concomitant]
     Dosage: 7.5 MG, UNK
     Route: 048
  5. MOHRUS [Concomitant]
     Dosage: UNK
     Route: 062

REACTIONS (7)
  - BACK PAIN [None]
  - BLOOD CREATINE PHOSPHOKINASE INCREASED [None]
  - BLOOD CREATININE INCREASED [None]
  - C-REACTIVE PROTEIN INCREASED [None]
  - INTERVERTEBRAL DISCITIS [None]
  - PYREXIA [None]
  - RENAL CANCER [None]
